FAERS Safety Report 18475631 (Version 1)
Quarter: 2020Q4

REPORT INFORMATION
  Report Type: Spontaneous
  Country: US (occurrence: US)
  Receive Date: 20201106
  Receipt Date: 20201106
  Transmission Date: 20210114
  Serious: No
  Sender: FDA-Public Use
  Company Number: US-BAUSCH-BL-2020-031370

PATIENT
  Age: 88 Year
  Sex: Female

DRUGS (4)
  1. BEPREVE [Suspect]
     Active Substance: BEPOTASTINE BESILATE
     Indication: DRY EYE
     Dosage: BOTH EYES TWICE DAILY
     Route: 047
     Dates: start: 20200922, end: 20201004
  2. ZERVIATE [Concomitant]
     Active Substance: CETIRIZINE HYDROCHLORIDE
     Indication: PRODUCT USED FOR UNKNOWN INDICATION
     Dosage: USED FOR 2 DAYS, AS NEEDED
     Route: 047
     Dates: start: 20200911, end: 20200922
  3. BEPREVE [Suspect]
     Active Substance: BEPOTASTINE BESILATE
     Indication: EYE ALLERGY
     Dosage: 1 DROP IN BOTH EYES ONCE DAILY AS NEEDED
     Route: 047
     Dates: start: 20200911, end: 202009
  4. BEPREVE [Suspect]
     Active Substance: BEPOTASTINE BESILATE
     Dosage: 1 DROP IN THE LEFT EYE ONCE DAILY
     Route: 047
     Dates: start: 20201016, end: 20201022

REACTIONS (8)
  - Palpitations [Recovered/Resolved]
  - Abdominal discomfort [Unknown]
  - Dry eye [Unknown]
  - Pruritus [Not Recovered/Not Resolved]
  - Dysgeusia [Unknown]
  - Insomnia [Unknown]
  - Eye allergy [Unknown]
  - Disease recurrence [Unknown]

NARRATIVE: CASE EVENT DATE: 2020
